FAERS Safety Report 18377832 (Version 7)
Quarter: 2023Q2

REPORT INFORMATION
  Report Type: Spontaneous
  Country: US (occurrence: US)
  Receive Date: 20201013
  Receipt Date: 20230427
  Transmission Date: 20230722
  Serious: Yes (Other)
  Sender: FDA-Public Use
  Company Number: US-PFIZER INC-2020393327

PATIENT
  Age: 65 Year
  Sex: Female
  Weight: 81.65 kg

DRUGS (3)
  1. XELJANZ [Suspect]
     Active Substance: TOFACITINIB CITRATE
     Indication: Rheumatoid arthritis
     Dosage: 5 MG, 2X/DAY
     Route: 048
     Dates: start: 2020, end: 202008
  2. PREDNISONE [Suspect]
     Active Substance: PREDNISONE
     Indication: Rheumatoid arthritis
     Dosage: 10 MG, DAILY
     Dates: start: 1990
  3. PREDNISONE [Suspect]
     Active Substance: PREDNISONE
     Dosage: 6 MG, DAILY

REACTIONS (5)
  - Cushing^s syndrome [Unknown]
  - Condition aggravated [Not Recovered/Not Resolved]
  - Illness [Unknown]
  - Pain [Unknown]
  - Product label issue [Unknown]

NARRATIVE: CASE EVENT DATE: 20200901
